FAERS Safety Report 24805319 (Version 1)
Quarter: 2024Q4

REPORT INFORMATION
  Report Type: Spontaneous
  Country: US (occurrence: None)
  Receive Date: 20241224
  Receipt Date: 20241224
  Transmission Date: 20250114
  Serious: Yes (Life-Threatening, Hospitalization)
  Sender: Public
  Company Number: None

PATIENT
  Age: 56 Year
  Sex: Male
  Weight: 79.2 kg

DRUGS (2)
  1. CANNABIS SATIVA SUBSP. INDICA TOP [Suspect]
     Active Substance: CANNABIS SATIVA SUBSP. INDICA TOP
     Indication: Anxiety
     Dosage: OTHER QUANTITY : 5 ROLLED CIGARETTES;?FREQUENCY : AS NEEDED;?
     Route: 055
     Dates: start: 20241206, end: 20241224
  2. FENTANYL [Suspect]
     Active Substance: FENTANYL

REACTIONS (2)
  - Suicide attempt [None]
  - Drug screen positive [None]

NARRATIVE: CASE EVENT DATE: 20241223
